FAERS Safety Report 12883193 (Version 2)
Quarter: 2016Q4

REPORT INFORMATION
  Report Type: Spontaneous
  Country: FR (occurrence: FR)
  Receive Date: 20161025
  Receipt Date: 20161219
  Transmission Date: 20170207
  Serious: Yes (Disabling, Other)
  Sender: FDA-Public Use
  Company Number: FR-BAYER-2016-198620

PATIENT
  Age: 35 Year
  Sex: Female

DRUGS (1)
  1. CIFLOX [Suspect]
     Active Substance: CIPROFLOXACIN
     Indication: CYSTITIS
     Dosage: 500 MG, BID
     Route: 048

REACTIONS (15)
  - Hypotonia [None]
  - Arthralgia [None]
  - Impaired work ability [None]
  - Burning sensation [None]
  - Muscle fatigue [None]
  - Headache [None]
  - Muscle spasms [None]
  - Pain [None]
  - Neuralgia [None]
  - Dyspnoea [None]
  - Paraesthesia [None]
  - Mobility decreased [Recovering/Resolving]
  - Contusion [None]
  - Suicidal ideation [None]
  - Sensory loss [None]

NARRATIVE: CASE EVENT DATE: 20161001
